FAERS Safety Report 15289787 (Version 1)
Quarter: 2018Q3

REPORT INFORMATION
  Report Type: Spontaneous
  Country: JP (occurrence: JP)
  Receive Date: 20180817
  Receipt Date: 20180817
  Transmission Date: 20181010
  Serious: Yes (Hospitalization, Other)
  Sender: FDA-Public Use
  Company Number: JP-APOTEX-2018AP017487

PATIENT
  Age: 82 Year
  Sex: Female

DRUGS (9)
  1. PAXIL [Suspect]
     Active Substance: PAROXETINE HYDROCHLORIDE
     Indication: SUICIDE ATTEMPT
     Dosage: UNK
     Route: 048
  2. FAMOTIDINE. [Concomitant]
     Active Substance: FAMOTIDINE
     Route: 065
  3. PAXIL CR [Suspect]
     Active Substance: PAROXETINE HYDROCHLORIDE
     Dosage: 80 DF, UNK
     Route: 065
     Dates: start: 20180709
  4. ETIZOLAM [Suspect]
     Active Substance: ETIZOLAM
     Indication: PRODUCT USED FOR UNKNOWN INDICATION
     Dosage: 6 UNK, UNK
     Route: 048
     Dates: end: 20180709
  5. LOXOPROFEN [Suspect]
     Active Substance: LOXOPROFEN
     Dosage: 22 UNK, UNK
     Route: 048
  6. URAPIDIL [Concomitant]
     Active Substance: URAPIDIL
     Route: 065
  7. ETIZOLAM [Suspect]
     Active Substance: ETIZOLAM
     Dosage: UNK
     Route: 048
  8. MAGNESIUM OXIDE. [Concomitant]
     Active Substance: MAGNESIUM OXIDE
     Route: 065
  9. ELDECALCITOL [Concomitant]
     Active Substance: ELDECALCITOL
     Route: 065

REACTIONS (8)
  - Altered state of consciousness [Unknown]
  - Overdose [Unknown]
  - Hyperreflexia [Unknown]
  - Serotonin syndrome [Unknown]
  - Musculoskeletal stiffness [Recovered/Resolved]
  - Blood creatine phosphokinase increased [Recovered/Resolved]
  - Platelet count decreased [Unknown]
  - Resting tremor [Unknown]

NARRATIVE: CASE EVENT DATE: 201807
